FAERS Safety Report 7515253-0 (Version None)
Quarter: 2011Q2

REPORT INFORMATION
  Report Type: 
  Country: None (occurrence: None)
  Receive Date: 20110601
  Receipt Date: 20100526
  Transmission Date: 20111010
  Serious: No
  Sender: FDA-Public Use
  Company Number: US-PFIZER INC-2010067806

PATIENT
  Sex: Female
  Weight: 85.3 kg

DRUGS (7)
  1. RISPERDAL [Concomitant]
     Indication: DEPRESSION
     Dosage: UNK
     Route: 048
  2. LITHIUM [Concomitant]
     Indication: BIPOLAR DISORDER
     Dosage: 900 MG, UNK
     Route: 048
  3. CHANTIX [Suspect]
     Indication: SMOKING CESSATION THERAPY
     Dosage: 1 MG, 1X/DAY
     Route: 048
     Dates: start: 20100524
  4. LEXAPRO [Concomitant]
     Indication: DEPRESSION
     Dosage: 20 MG, 1X/DAY
     Route: 048
  5. METFORMIN HYDROCHLORIDE [Concomitant]
     Indication: POLYCYSTIC OVARIES
  6. DEPACON [Concomitant]
     Indication: EPILEPSY
     Dosage: 1500 MG, 1X/DAY
     Route: 042
  7. METFORMIN HYDROCHLORIDE [Concomitant]
     Indication: GLUCOSE TOLERANCE IMPAIRED
     Dosage: 500 MG, 3X/DAY
     Route: 048

REACTIONS (2)
  - NAUSEA [None]
  - VOMITING [None]
